FAERS Safety Report 6679265-1 (Version None)
Quarter: 2010Q2

REPORT INFORMATION
  Report Type: 
  Country: None (occurrence: None)
  Receive Date: 20100413
  Receipt Date: 20100408
  Transmission Date: 20101027
  Serious: Yes (Death)
  Sender: FDA-Public Use
  Company Number: JP-PFIZER INC-2010045158

PATIENT

DRUGS (2)
  1. NOVASTAN [Suspect]
     Dosage: UNK
     Route: 042
  2. HEPARIN SODIUM [Concomitant]
     Dosage: UNK
     Route: 051

REACTIONS (1)
  - HEPARIN-INDUCED THROMBOCYTOPENIA [None]
